FAERS Safety Report 7901272-9 (Version None)
Quarter: 2011Q4

REPORT INFORMATION
  Report Type: 
  Country: None (occurrence: None)
  Receive Date: 20111108
  Receipt Date: 20111031
  Transmission Date: 20120403
  Serious: Yes (Hospitalization, Other)
  Sender: FDA-Public Use
  Company Number: PHHY2011PL91163

PATIENT
  Sex: Female
  Weight: 62 kg

DRUGS (3)
  1. EXTAVIA [Suspect]
     Indication: MULTIPLE SCLEROSIS
     Dosage: 250 UG (EVERY SECOND DAY)
     Route: 058
     Dates: start: 20101216, end: 20110829
  2. EYE DROPS [Concomitant]
     Indication: CONJUNCTIVITIS
  3. IBUPROM [Concomitant]
     Indication: PAIN
     Dosage: 200 MG, DAILY
     Route: 048

REACTIONS (2)
  - MATERNAL EXPOSURE DURING PREGNANCY [None]
  - BLIGHTED OVUM [None]
